FAERS Safety Report 15350310 (Version 3)
Quarter: 2018Q3

REPORT INFORMATION
  Report Type: Report from Study
  Country: None (occurrence: US)
  Receive Date: 20180905
  Receipt Date: 20180925
  Transmission Date: 20181010
  Serious: No
  Sender: FDA-Public Use
  Company Number: US-ABBVIE-18K-163-2433712-00

PATIENT
  Age: 61 Year
  Sex: Female

DRUGS (4)
  1. HUMIRA [Suspect]
     Active Substance: ADALIMUMAB
     Indication: COLITIS ULCERATIVE
     Route: 058
     Dates: start: 20180712, end: 20180712
  2. HUMIRA [Suspect]
     Active Substance: ADALIMUMAB
     Dosage: DAY 29
     Route: 058
     Dates: start: 20180809, end: 2018
  3. HUMIRA [Suspect]
     Active Substance: ADALIMUMAB
     Dosage: DAY 15
     Route: 058
     Dates: start: 20180726, end: 20180726
  4. HUMIRA [Suspect]
     Active Substance: ADALIMUMAB
     Route: 058
     Dates: start: 2018

REACTIONS (12)
  - Pruritus [Unknown]
  - Swelling [Unknown]
  - Erythema [Unknown]
  - Pain [Unknown]
  - Pain in extremity [Unknown]
  - Arthropod bite [Unknown]
  - Peripheral swelling [Recovering/Resolving]
  - Dermatitis contact [Unknown]
  - Insomnia [Unknown]
  - Arthralgia [Unknown]
  - Abnormal faeces [Unknown]
  - Erythema [Recovering/Resolving]

NARRATIVE: CASE EVENT DATE: 2018
